FAERS Safety Report 16659151 (Version 2)
Quarter: 2019Q4

REPORT INFORMATION
  Report Type: Report from Study
  Country: NL (occurrence: NL)
  Receive Date: 20190802
  Receipt Date: 20191117
  Transmission Date: 20200122
  Serious: Yes (Hospitalization)
  Sender: FDA-Public Use
  Company Number: NL-AMGEN-NLDSL2019120947

PATIENT
  Age: 55 Year
  Sex: Female

DRUGS (9)
  1. XGEVA [Suspect]
     Active Substance: DENOSUMAB
     Indication: PROPHYLAXIS
     Dosage: 120 MILLIGRAM (70MG/ML FLACON 1,7ML), Q4WK
     Route: 065
     Dates: start: 20190401
  2. XGEVA [Suspect]
     Active Substance: DENOSUMAB
     Dosage: 120 MILLIGRAM (70MG/ML FLACON 1,7ML), Q4WK
     Route: 065
  3. FENTANYL. [Concomitant]
     Active Substance: FENTANYL
     Dosage: 25 UG/HR (GENERIC+DUROGESIC), 1X3D1PL
  4. FLUCLOXACILLINE [FLUCLOXACILLIN] [Concomitant]
     Dosage: 500 MILLIGRAM, 4D1C
  5. PARACETAMOL [Concomitant]
     Active Substance: ACETAMINOPHEN
     Dosage: 1000 MILLIGRAM, 4D1T
  6. TEMAZEPAM. [Concomitant]
     Active Substance: TEMAZEPAM
     Dosage: 10 MILLIGRAM (1D1C)
  7. PYRIDOXINE [Concomitant]
     Active Substance: PYRIDOXINE
     Dosage: 50 MILLIGRAM (1D1T)
  8. CAPECITABINE. [Concomitant]
     Active Substance: CAPECITABINE
     Dosage: 500 MILLIGRAM (2D3T)
  9. AMITRIPTYLINE HCL [Concomitant]
     Active Substance: AMITRIPTYLINE
     Dosage: 25 MILLIGRAM, QD

REACTIONS (5)
  - Nausea [Unknown]
  - Paraesthesia [Unknown]
  - Skin infection [Unknown]
  - Chest pain [Unknown]
  - Trismus [Unknown]

NARRATIVE: CASE EVENT DATE: 20190718
